FAERS Safety Report 9246898 (Version 2)
Quarter: 2013Q2

REPORT INFORMATION
  Report Type: Spontaneous
  Country: FR (occurrence: FR)
  Receive Date: 20130422
  Receipt Date: 20130513
  Transmission Date: 20140414
  Serious: Yes (Hospitalization)
  Sender: FDA-Public Use
  Company Number: FR-GLAXOSMITHKLINE-B0884293A

PATIENT
  Age: 70 Year
  Sex: Male

DRUGS (13)
  1. ZELITREX [Suspect]
     Indication: PRODUCT USED FOR UNKNOWN INDICATION
     Dosage: 500MG PER DAY
     Route: 048
     Dates: start: 20130301, end: 20130314
  2. VANCOMYCINE [Suspect]
     Indication: PRODUCT USED FOR UNKNOWN INDICATION
     Route: 042
     Dates: start: 20130206, end: 20130207
  3. ZYVOXID [Suspect]
     Indication: PRODUCT USED FOR UNKNOWN INDICATION
     Dosage: 600MG PER DAY
     Route: 048
     Dates: start: 20130307, end: 20130313
  4. PIPERACILLIN + TAZOBACTAM [Suspect]
     Indication: PRODUCT USED FOR UNKNOWN INDICATION
     Dosage: 4G THREE TIMES PER DAY
     Route: 042
     Dates: start: 20130206, end: 20130226
  5. BACTRIM [Suspect]
     Indication: PRODUCT USED FOR UNKNOWN INDICATION
     Route: 065
     Dates: start: 20130210, end: 20130314
  6. ACICLOVIR [Suspect]
     Indication: PRODUCT USED FOR UNKNOWN INDICATION
     Dosage: 250MG THREE TIMES PER DAY
     Route: 042
     Dates: start: 20130218, end: 20130301
  7. TAHOR [Concomitant]
     Dosage: 40MG PER DAY
     Route: 048
  8. METOPROLOL [Concomitant]
     Dosage: 50MG TWICE PER DAY
     Route: 048
  9. JANUMET [Concomitant]
     Dosage: 50MG TWICE PER DAY
     Route: 048
  10. IDARUBICINE [Concomitant]
     Indication: CHEMOTHERAPY
  11. CYTARABINE [Concomitant]
     Indication: CHEMOTHERAPY
  12. METHOTREXATE [Concomitant]
     Indication: CHEMOTHERAPY
     Route: 037
  13. ARACYTINE [Concomitant]
     Indication: CHEMOTHERAPY
     Route: 037

REACTIONS (6)
  - Drug reaction with eosinophilia and systemic symptoms [Recovering/Resolving]
  - Rash papular [Recovering/Resolving]
  - Pruritus [Recovering/Resolving]
  - Eosinophilia [Recovering/Resolving]
  - Liver injury [Recovering/Resolving]
  - Pyrexia [Unknown]
